FAERS Safety Report 4850922-2 (Version None)
Quarter: 2005Q4

REPORT INFORMATION
  Report Type: 
  Country: None (occurrence: None)
  Receive Date: 20051212
  Receipt Date: 20051205
  Transmission Date: 20060501
  Serious: Yes (Hospitalization)
  Sender: FDA-Public Use
  Company Number: FR-SANOFI-SYNTHELABO-A02200503190

PATIENT
  Age: 78 Year
  Sex: Female
  Weight: 65 kg

DRUGS (4)
  1. ELOXATIN [Suspect]
     Indication: BREAST CANCER METASTATIC
     Route: 042
     Dates: start: 20050817, end: 20050817
  2. GEMZAR [Suspect]
     Indication: BREAST CANCER METASTATIC
     Route: 042
     Dates: end: 20050823
  3. ZOMETA [Concomitant]
     Indication: BREAST CANCER METASTATIC
     Route: 042
     Dates: end: 20050823
  4. ACE INHIBITOR NOS [Concomitant]

REACTIONS (5)
  - HAPTOGLOBIN DECREASED [None]
  - KIDNEY FIBROSIS [None]
  - RENAL FAILURE ACUTE [None]
  - SJOGREN'S SYNDROME [None]
  - THROMBOTIC MICROANGIOPATHY [None]
